FAERS Safety Report 20723480 (Version 2)
Quarter: 2022Q2

REPORT INFORMATION
  Report Type: Spontaneous
  Country: US (occurrence: None)
  Receive Date: 20220419
  Receipt Date: 20220504
  Transmission Date: 20220720
  Serious: Yes (Hospitalization)
  Sender: FDA-Public Use
  Company Number: US-Ultragenyx Pharmaceutical Inc.-US-UGNX-22-00209

PATIENT
  Sex: Male

DRUGS (2)
  1. DOJOLVI [Suspect]
     Active Substance: TRIHEPTANOIN
     Indication: Carnitine palmitoyltransferase deficiency
     Dosage: 4 ML VIA G-TUBE
     Dates: start: 20220120
  2. DOJOLVI [Suspect]
     Active Substance: TRIHEPTANOIN
     Dosage: 2 ML VIA G-TUBE
     Dates: start: 20220225

REACTIONS (3)
  - Appendicitis [Unknown]
  - Bacteriuria [Unknown]
  - Bacteraemia [Unknown]
